FAERS Safety Report 5580499-8 (Version None)
Quarter: 2008Q1

REPORT INFORMATION
  Report Type: 
  Country: None (occurrence: None)
  Receive Date: 20080103
  Receipt Date: 20071221
  Transmission Date: 20080703
  Serious: Yes (Hospitalization, Other)
  Sender: FDA-Public Use
  Company Number: FR-ELI_LILLY_AND_COMPANY-FR200712004642

PATIENT
  Sex: Male

DRUGS (10)
  1. UMULINE 30% REGULAR, 70% NPH [Suspect]
     Indication: INSULIN-REQUIRING TYPE 2 DIABETES MELLITUS
     Dosage: 18 IU, EACH MORNING
     Route: 058
  2. UMULINE 30% REGULAR, 70% NPH [Suspect]
     Dosage: 12 IU, DAILY (1/D)
     Route: 058
  3. UMULINE 30% REGULAR, 70% NPH [Suspect]
     Dosage: 14 IU, EACH EVENING
     Route: 058
  4. PREVISCAN [Concomitant]
  5. TRIATEC [Concomitant]
     Dosage: 2.5 MG, UNK
     Route: 048
  6. BISOPROLOL FUMARATE [Concomitant]
     Dosage: 1.25 MG, UNK
     Route: 048
  7. TAHOR [Concomitant]
     Dosage: 10 MG, UNK
     Route: 048
  8. LASILIX [Concomitant]
     Dosage: 40 MG, UNK
     Route: 048
  9. MOPRAL [Concomitant]
     Dosage: 20 MG, UNK
     Route: 048
  10. CORVASAL [Concomitant]
     Dosage: 2 MG, UNK
     Route: 048

REACTIONS (6)
  - CLAVICLE FRACTURE [None]
  - DYSPNOEA [None]
  - FALL [None]
  - HYPOGLYCAEMIC UNCONSCIOUSNESS [None]
  - INTERNATIONAL NORMALISED RATIO INCREASED [None]
  - MALAISE [None]
